FAERS Safety Report 18004944 (Version 2)
Quarter: 2020Q3

REPORT INFORMATION
  Report Type: Spontaneous
  Country: AU (occurrence: AU)
  Receive Date: 20200709
  Receipt Date: 20200804
  Transmission Date: 20201103
  Serious: Yes (Other)
  Sender: FDA-Public Use
  Company Number: AU-JNJFOC-20200640771

PATIENT
  Age: 17 Year
  Sex: Female

DRUGS (5)
  1. FLUDROCORTISONE [Suspect]
     Active Substance: FLUDROCORTISONE
  2. MESALAZINE [Suspect]
     Active Substance: MESALAMINE
  3. HYDROCORTISONE. [Suspect]
     Active Substance: HYDROCORTISONE
  4. VENLAFAXINE HYDROCHLORIDE. [Suspect]
     Active Substance: VENLAFAXINE HYDROCHLORIDE
  5. TOPAMAX [Suspect]
     Active Substance: TOPIRAMATE
     Indication: PRODUCT USED FOR UNKNOWN INDICATION
     Route: 048

REACTIONS (8)
  - Lethargy [Unknown]
  - Asthenia [Unknown]
  - Adrenal insufficiency [Unknown]
  - Off label use [Unknown]
  - Mobility decreased [Unknown]
  - Quality of life decreased [Unknown]
  - Arthralgia [Unknown]
  - Incorrect route of product administration [Unknown]
